FAERS Safety Report 15351082 (Version 3)
Quarter: 2019Q2

REPORT INFORMATION
  Report Type: Report from Study
  Country: US (occurrence: US)
  Receive Date: 20180905
  Receipt Date: 20190416
  Transmission Date: 20190711
  Serious: No
  Sender: FDA-Public Use
  Company Number: PHHY2018US090126

PATIENT
  Age: 62 Year
  Sex: Female

DRUGS (1)
  1. OMNITROPE [Suspect]
     Active Substance: SOMATROPIN
     Indication: HYPOPITUITARISM
     Dosage: 0.7 MG/KG, QD
     Route: 058
     Dates: start: 20180611, end: 20180615

REACTIONS (4)
  - Incorrect dose administered [Unknown]
  - Injection site bruising [Unknown]
  - Injection site extravasation [Unknown]
  - Memory impairment [Unknown]

NARRATIVE: CASE EVENT DATE: 20180611
